FAERS Safety Report 20205846 (Version 1)
Quarter: 2021Q4

REPORT INFORMATION
  Report Type: Spontaneous
  Country: US (occurrence: None)
  Receive Date: 20211217
  Receipt Date: 20211217
  Transmission Date: 20220303
  Serious: Yes (Life-Threatening, Hospitalization)
  Sender: FDA-Public Use
  Company Number: None

PATIENT
  Age: 51 Year
  Sex: Male
  Weight: 158.2 kg

DRUGS (9)
  1. BARICITINIB [Suspect]
     Active Substance: BARICITINIB
  2. ALTEPLASE [Concomitant]
     Active Substance: ALTEPLASE
  3. BARICITINIB [Concomitant]
     Active Substance: BARICITINIB
  4. ENOXAPARIN [Concomitant]
     Active Substance: ENOXAPARIN
  5. HEPARIN [Concomitant]
     Active Substance: HEPARIN SODIUM
  6. EPOPROSTENOL [Concomitant]
     Active Substance: EPOPROSTENOL
  7. DEXAMETHASONE [Concomitant]
     Active Substance: DEXAMETHASONE
  8. CISATRACURIUM [Concomitant]
     Active Substance: CISATRACURIUM
  9. NOREPINEPHRINE\NOREPINEPHRINE BITARTRATE [Concomitant]
     Active Substance: NOREPINEPHRINE\NOREPINEPHRINE BITARTRATE

REACTIONS (3)
  - Pulmonary embolism [None]
  - Systolic dysfunction [None]
  - Hypotension [None]

NARRATIVE: CASE EVENT DATE: 20211216
